FAERS Safety Report 15531286 (Version 1)
Quarter: 2018Q4

REPORT INFORMATION
  Report Type: Spontaneous
  Country: FR (occurrence: FR)
  Receive Date: 20181019
  Receipt Date: 20181019
  Transmission Date: 20190205
  Serious: Yes (Other)
  Sender: FDA-Public Use
  Company Number: FR-TEVA-2018-FR-966076

PATIENT
  Age: 66 Year
  Sex: Female

DRUGS (5)
  1. METOJECT 20 MG/0,4 ML, SOLUTION INJECTABLE EN SERINGUE PR?REMPLIE [Concomitant]
     Indication: RHEUMATOID ARTHRITIS
     Route: 058
  2. RISEDRONATE MONOSODIQUE ANHYDRE [Suspect]
     Active Substance: RISEDRONIC ACID
     Indication: OSTEOPOROSIS
     Dosage: 1 DOSAGE FORMS DAILY;
     Route: 048
     Dates: start: 20180829, end: 20180908
  3. CORTANCYL 20 MG, COMPRIM? S?CABLE [Concomitant]
     Indication: RHEUMATOID ARTHRITIS
     Dosage: 3 DOSAGE FORMS DAILY;
     Route: 048
  4. CELEBREX 200 MG, G?LULE [Concomitant]
     Indication: RHEUMATOID ARTHRITIS
     Dosage: 1 DOSAGE FORMS DAILY;
     Route: 048
  5. INIPOMP 20 MG, COMPRIM? GASTRO-R?SISTANT [Concomitant]
     Indication: PROPHYLAXIS AGAINST GASTROINTESTINAL ULCER
     Dosage: 1 DOSAGE FORMS DAILY;
     Route: 048

REACTIONS (5)
  - Movement disorder [Not Recovered/Not Resolved]
  - Accidental overdose [Not Recovered/Not Resolved]
  - Vertigo [Not Recovered/Not Resolved]
  - Incorrect dose administered [Not Recovered/Not Resolved]
  - Memory impairment [Not Recovered/Not Resolved]

NARRATIVE: CASE EVENT DATE: 20180829
